FAERS Safety Report 10478107 (Version 1)
Quarter: 2014Q3

REPORT INFORMATION
  Report Type: Spontaneous
  Country: US (occurrence: US)
  Receive Date: 20140926
  Receipt Date: 20140926
  Transmission Date: 20150326
  Serious: No
  Sender: FDA-Public Use
  Company Number: US-PFIZER INC-2014264288

PATIENT
  Age: 76 Year
  Sex: Male
  Weight: 75.74 kg

DRUGS (1)
  1. SUTENT [Suspect]
     Active Substance: SUNITINIB MALATE
     Indication: RENAL CANCER
     Dosage: 12.5 MG, CYCLIC, (3X/DAY FOR 28 DAYS THEN 14 DAYS OFF)

REACTIONS (1)
  - Oral disorder [Unknown]
